FAERS Safety Report 12341456 (Version 2)
Quarter: 2016Q2

REPORT INFORMATION
  Report Type: Spontaneous
  Country: US (occurrence: US)
  Receive Date: 20160506
  Receipt Date: 20160506
  Transmission Date: 20160815
  Serious: No
  Sender: FDA-Public Use
  Company Number: US-BAYER-2016-083377

PATIENT

DRUGS (2)
  1. CHILDREN CLARITIN ALLERGY [Suspect]
     Active Substance: LORATADINE
  2. CHILDREN CLARITIN ALLERGY [Suspect]
     Active Substance: LORATADINE

REACTIONS (5)
  - Somnolence [None]
  - Dyspnoea [None]
  - Malaise [None]
  - Oropharyngeal pain [None]
  - Mouth breathing [None]
